FAERS Safety Report 8035751-3 (Version None)
Quarter: 2012Q1

REPORT INFORMATION
  Report Type: 
  Country: None (occurrence: None)
  Receive Date: 20120111
  Receipt Date: 20120103
  Transmission Date: 20120608
  Serious: Yes (Hospitalization)
  Sender: FDA-Public Use
  Company Number: US-US-EMD SERONO, INC.-7104868

PATIENT
  Sex: Female
  Weight: 91 kg

DRUGS (5)
  1. HIGH BLOOD PRESSURE MEDICINE [Concomitant]
     Indication: HYPERTENSION
  2. REBIF [Suspect]
     Indication: MULTIPLE SCLEROSIS
     Route: 058
     Dates: start: 20110727
  3. DEPRESSION MEDICATION [Concomitant]
     Indication: DEPRESSION
  4. PREMEDICATION [Concomitant]
     Indication: PREMEDICATION
  5. MECLIZINE [Concomitant]
     Indication: VERTIGO

REACTIONS (6)
  - VERTIGO [None]
  - LOSS OF CONSCIOUSNESS [None]
  - STRESS [None]
  - BLOOD POTASSIUM DECREASED [None]
  - DEPRESSION [None]
  - BODY TEMPERATURE FLUCTUATION [None]
